FAERS Safety Report 15117323 (Version 1)
Quarter: 2018Q3

REPORT INFORMATION
  Report Type: Spontaneous
  Country: US (occurrence: US)
  Receive Date: 20180706
  Receipt Date: 20180706
  Transmission Date: 20181010
  Serious: Yes (Other)
  Sender: FDA-Public Use
  Company Number: US-DUCHESNAY INC.-2051528

PATIENT
  Age: 38 Year
  Sex: Female
  Weight: 65.91 kg

DRUGS (1)
  1. BONJESTA [Suspect]
     Active Substance: DOXYLAMINE SUCCINATE\PYRIDOXINE HYDROCHLORIDE
     Indication: PRODUCT USED FOR UNKNOWN INDICATION
     Route: 048
     Dates: start: 20180619, end: 20180628

REACTIONS (2)
  - Urinary retention [Unknown]
  - Dysuria [Unknown]

NARRATIVE: CASE EVENT DATE: 20180619
